FAERS Safety Report 5285048-X (Version None)
Quarter: 2007Q1

REPORT INFORMATION
  Report Type: 
  Country: None (occurrence: None)
  Receive Date: 20070328
  Receipt Date: 20070319
  Transmission Date: 20070707
  Serious: Yes (Hospitalization)
  Sender: FDA-Public Use
  Company Number: 2007SP003877

PATIENT
  Age: 62 Year
  Sex: Male
  Weight: 76 kg

DRUGS (1)
  1. PEG-INTRON [Suspect]
     Indication: HEPATITIS C
     Dosage: 50 MCG;QW;SC
     Route: 058
     Dates: start: 20050905, end: 20070226

REACTIONS (2)
  - NO THERAPEUTIC RESPONSE [None]
  - TUBERCULOSIS [None]
